FAERS Safety Report 12917750 (Version 1)
Quarter: 2016Q4

REPORT INFORMATION
  Report Type: Spontaneous
  Country: US (occurrence: US)
  Receive Date: 20161107
  Receipt Date: 20161107
  Transmission Date: 20170207
  Serious: No
  Sender: FDA-Public Use
  Company Number: US-PFIZER INC-2016513116

PATIENT
  Age: 55 Year
  Sex: Female

DRUGS (1)
  1. IBRANCE [Suspect]
     Active Substance: PALBOCICLIB
     Dosage: 125 MG, CYCLIC (QD X 21 D THEN 7 DAYS OFF)
     Route: 048
     Dates: start: 20151102

REACTIONS (3)
  - Drug dose omission [Unknown]
  - Nausea [Unknown]
  - Malaise [Unknown]
